FAERS Safety Report 11382671 (Version 4)
Quarter: 2020Q3

REPORT INFORMATION
  Report Type: Spontaneous
  Country: US (occurrence: US)
  Receive Date: 20150814
  Receipt Date: 20200814
  Transmission Date: 20201102
  Serious: Yes (Other)
  Sender: FDA-Public Use
  Company Number: US-PFIZER INC-2015268436

PATIENT
  Age: 56 Year
  Sex: Male
  Weight: 122 kg

DRUGS (5)
  1. PRISTIQ EXTENDED?RELEASE [Suspect]
     Active Substance: DESVENLAFAXINE SUCCINATE
     Indication: POST-TRAUMATIC STRESS DISORDER
     Dosage: 100 MG, 1X/DAY
  2. PRISTIQ EXTENDED?RELEASE [Suspect]
     Active Substance: DESVENLAFAXINE SUCCINATE
     Indication: MAJOR DEPRESSION
     Dosage: 100 MG, 3X/DAY (3 CAPSULES IN THE MORNING)
     Route: 048
  3. PRISTIQ EXTENDED?RELEASE [Suspect]
     Active Substance: DESVENLAFAXINE SUCCINATE
     Indication: ANXIETY
     Dosage: 300 MG, DAILY (3 PILLS A DAY IN THE MORNING TIME ALL AT ONE TIME)
     Route: 048
  4. PRISTIQ EXTENDED?RELEASE [Suspect]
     Active Substance: DESVENLAFAXINE SUCCINATE
     Dosage: 100 MG, 3X/DAY
     Route: 048
  5. PRISTIQ EXTENDED?RELEASE [Suspect]
     Active Substance: DESVENLAFAXINE SUCCINATE
     Dosage: 300 MG, DAILY(3 PILLS A DAY IN THE MORNING TIME ALL AT ONE TIME)
     Route: 048

REACTIONS (4)
  - Drug dependence [Unknown]
  - Jaw fracture [Unknown]
  - Victim of crime [Unknown]
  - Overdose [Unknown]
